FAERS Safety Report 8561924-7 (Version None)
Quarter: 2012Q3

REPORT INFORMATION
  Report Type: 
  Country: None (occurrence: None)
  Receive Date: 20120802
  Receipt Date: 20120718
  Transmission Date: 20120928
  Serious: No
  Sender: FDA-Public Use
  Company Number: US-ASTRAZENECA-2012SE22632

PATIENT
  Age: 43 Year
  Sex: Male

DRUGS (1)
  1. CRESTOR [Suspect]
     Indication: CORONARY ARTERY DISEASE
     Route: 048
     Dates: start: 20120330, end: 20120402

REACTIONS (3)
  - BOWEL MOVEMENT IRREGULARITY [None]
  - MYALGIA [None]
  - DYSPNOEA [None]
